FAERS Safety Report 22797295 (Version 5)
Quarter: 2024Q2

REPORT INFORMATION
  Report Type: Spontaneous
  Country: US (occurrence: US)
  Receive Date: 20230808
  Receipt Date: 20240626
  Transmission Date: 20240716
  Serious: Yes (Other)
  Sender: FDA-Public Use
  Company Number: US-JNJFOC-20230813251

PATIENT
  Sex: Female

DRUGS (7)
  1. STELARA [Suspect]
     Active Substance: USTEKINUMAB
     Indication: Psoriasis
     Route: 058
     Dates: start: 2016, end: 2023
  2. STELARA [Suspect]
     Active Substance: USTEKINUMAB
     Indication: Psoriatic arthropathy
     Route: 058
     Dates: start: 2016, end: 2023
  3. PREDNISONE [Concomitant]
     Active Substance: PREDNISONE
  4. SUDAFED [Concomitant]
     Active Substance: PSEUDOEPHEDRINE HYDROCHLORIDE
  5. CLARITIN-D NOS [Concomitant]
     Active Substance: LORATADINE\PSEUDOEPHEDRINE SULFATE
  6. AMOXICILLIN [Concomitant]
     Active Substance: AMOXICILLIN
  7. AUGMENTIN [Concomitant]
     Active Substance: AMOXICILLIN\CLAVULANATE POTASSIUM

REACTIONS (7)
  - Squamous cell carcinoma [Recovered/Resolved]
  - Basal cell carcinoma [Recovered/Resolved]
  - Tendonitis [Unknown]
  - Plantar fasciitis [Unknown]
  - Ear congestion [Unknown]
  - Sinusitis [Unknown]
  - Back pain [Unknown]

NARRATIVE: CASE EVENT DATE: 20230101
